FAERS Safety Report 5024581-2 (Version None)
Quarter: 2006Q2

REPORT INFORMATION
  Report Type: 
  Country: None (occurrence: None)
  Receive Date: 20060607
  Receipt Date: 20060525
  Transmission Date: 20061013
  Serious: Yes (Hospitalization, Other)
  Sender: FDA-Public Use
  Company Number: 2006051056

PATIENT
  Age: 71 Year
  Sex: Female
  Weight: 99.3377 kg

DRUGS (12)
  1. LYRICA [Suspect]
     Indication: POST HERPETIC NEURALGIA
     Dosage: 50 MG, ORAL
     Route: 048
     Dates: start: 20051220, end: 20060206
  2. LASIX [Concomitant]
  3. LEVOTHYROXINE SODIUM [Concomitant]
  4. ALTACE [Concomitant]
  5. ALLOPURINOL [Concomitant]
  6. PREDNISONE [Concomitant]
  7. TACROLIMUS [Concomitant]
  8. MYCOPHENOLATE SODIUM (MYCOPHENOLIC ACID SODIUM SALT) [Concomitant]
  9. LOSEC (OMEPRAZOLE) [Concomitant]
  10. NPH INSULIN [Concomitant]
  11. HUMULIN R [Concomitant]
  12. ZOPICLONE [Concomitant]

REACTIONS (4)
  - JAUNDICE [None]
  - LIVER TRANSPLANT REJECTION [None]
  - OEDEMA [None]
  - URTICARIA GENERALISED [None]
